FAERS Safety Report 8309439-5 (Version None)
Quarter: 2012Q2

REPORT INFORMATION
  Report Type: 
  Country: None (occurrence: None)
  Receive Date: 20120424
  Receipt Date: 20120424
  Transmission Date: 20120825
  Serious: Yes (Other)
  Sender: FDA-Public Use
  Company Number: None

PATIENT
  Age: 81 Year
  Sex: Male
  Weight: 70 kg

DRUGS (2)
  1. LYRICA [Suspect]
     Indication: BREAKTHROUGH PAIN
     Dosage: 04/13/12: ONE CAPSULE TID PO - 04/14/12: ONE CAPSULE BID PO
     Route: 048
     Dates: start: 20120414
  2. LYRICA [Suspect]
     Indication: LUMBAR VERTEBRAL FRACTURE
     Dosage: 04/13/12: ONE CAPSULE TID PO - 04/14/12: ONE CAPSULE BID PO
     Route: 048
     Dates: start: 20120414

REACTIONS (3)
  - MYOCLONUS [None]
  - UNRESPONSIVE TO STIMULI [None]
  - BLOOD GLUCOSE DECREASED [None]
